FAERS Safety Report 5514003-7 (Version None)
Quarter: 2007Q4

REPORT INFORMATION
  Report Type: 
  Country: None (occurrence: None)
  Receive Date: 20071107
  Receipt Date: 20061019
  Transmission Date: 20080405
  Serious: Yes (Hospitalization)
  Sender: FDA-Public Use
  Company Number: 2006RL000372

PATIENT
  Age: 59 Year
  Sex: Male
  Weight: 97.5234 kg

DRUGS (6)
  1. RYTHMOL SR [Suspect]
     Indication: ATRIAL FIBRILLATION
     Dosage: 225 MG;BID;PO ; 550 MG;QD;PO ; 325 MG;BID;PO
     Route: 048
     Dates: start: 20050101, end: 20050101
  2. RYTHMOL SR [Suspect]
     Indication: ATRIAL FIBRILLATION
     Dosage: 225 MG;BID;PO ; 550 MG;QD;PO ; 325 MG;BID;PO
     Route: 048
     Dates: start: 20050101, end: 20061019
  3. RYTHMOL SR [Suspect]
     Indication: ATRIAL FIBRILLATION
     Dosage: 225 MG;BID;PO ; 550 MG;QD;PO ; 325 MG;BID;PO
     Route: 048
     Dates: start: 20061019
  4. ASPIRIN [Concomitant]
  5. NEXIUM [Concomitant]
  6. CRESTOR [Concomitant]

REACTIONS (7)
  - ASTHENIA [None]
  - ATRIAL FIBRILLATION [None]
  - DISEASE RECURRENCE [None]
  - DRUG EFFECT DECREASED [None]
  - MALAISE [None]
  - PAIN [None]
  - PRESYNCOPE [None]
